FAERS Safety Report 9653379 (Version 1)
Quarter: 2013Q4

REPORT INFORMATION
  Report Type: Spontaneous
  Country: BG (occurrence: BG)
  Receive Date: 20131029
  Receipt Date: 20131029
  Transmission Date: 20140711
  Serious: Yes (Other)
  Sender: FDA-Public Use
  Company Number: BG-ASTRAZENECA-2013SE79213

PATIENT
  Age: 54 Year
  Sex: Male

DRUGS (5)
  1. CRESTOR [Suspect]
     Indication: MYOCARDIAL INFARCTION
     Route: 048
     Dates: start: 20130620
  2. BRILIQUE [Suspect]
     Indication: MYOCARDIAL INFARCTION
     Route: 048
     Dates: start: 20130620
  3. ASPIRIN PROTECT [Suspect]
     Indication: MYOCARDIAL INFARCTION
     Route: 048
     Dates: start: 20130620
  4. CORDARONE [Suspect]
     Indication: MYOCARDIAL INFARCTION
     Dates: start: 20130620
  5. DICLOFENAC DUO [Concomitant]
     Indication: GOUT
     Route: 048
     Dates: start: 20130831

REACTIONS (6)
  - Oedema peripheral [Recovered/Resolved]
  - Oral pain [Recovered/Resolved]
  - Impaired healing [Unknown]
  - Coagulation time prolonged [Unknown]
  - Arthralgia [Recovered/Resolved]
  - Lip swelling [Recovered/Resolved]
